FAERS Safety Report 8908443 (Version 2)
Quarter: 2013Q2

REPORT INFORMATION
  Report Type: Spontaneous
  Country: FR (occurrence: FR)
  Receive Date: 20121113
  Receipt Date: 20130522
  Transmission Date: 20140414
  Serious: Yes (Hospitalization)
  Sender: FDA-Public Use
  Company Number: PHHY2012FR103554

PATIENT
  Age: 71 Year
  Sex: Male

DRUGS (3)
  1. GLIVEC [Suspect]
     Indication: CHRONIC MYELOID LEUKAEMIA
     Dosage: 400 MG,DAILY
     Route: 048
     Dates: start: 2007
  2. EUPRESSYL [Concomitant]
  3. IDARAC [Concomitant]

REACTIONS (3)
  - Laryngeal papilloma [Not Recovered/Not Resolved]
  - Laryngeal cancer [Not Recovered/Not Resolved]
  - Second primary malignancy [Not Recovered/Not Resolved]
